FAERS Safety Report 10359548 (Version 1)
Quarter: 2014Q3

REPORT INFORMATION
  Report Type: Spontaneous
  Country: US (occurrence: US)
  Receive Date: 20140804
  Receipt Date: 20140804
  Transmission Date: 20150326
  Serious: No
  Sender: FDA-Public Use
  Company Number: US-BAYER-2014-110240

PATIENT
  Age: 82 Year
  Sex: Female
  Weight: 68 kg

DRUGS (6)
  1. ALEVE [Suspect]
     Active Substance: NAPROXEN SODIUM
     Indication: ARTHRALGIA
  2. AMLODIPINE [Concomitant]
     Active Substance: AMLODIPINE BESYLATE
     Dosage: 5 MG, UNK
  3. ATORVASTATIN [Concomitant]
     Active Substance: ATORVASTATIN
     Dosage: 40 MG, UNK
  4. TOPRAL [Concomitant]
     Active Substance: SULTOPRIDE HYDROCHLORIDE
     Dosage: 50 MG, UNK
  5. ALEVE [Suspect]
     Active Substance: NAPROXEN SODIUM
     Indication: SPINAL COLUMN STENOSIS
     Dosage: 2 DF, QD
     Route: 048
  6. LISINOPRIL. [Concomitant]
     Active Substance: LISINOPRIL
     Dosage: 40 MG, UNK

REACTIONS (4)
  - Throat irritation [Recovered/Resolved]
  - Drug ineffective [None]
  - Intentional product misuse [None]
  - Incorrect drug administration duration [None]

NARRATIVE: CASE EVENT DATE: 2013
